FAERS Safety Report 7047377-9 (Version None)
Quarter: 2010Q4

REPORT INFORMATION
  Report Type: 
  Country: None (occurrence: None)
  Receive Date: 20101008
  Receipt Date: 20100929
  Transmission Date: 20110411
  Serious: Yes (Hospitalization)
  Sender: FDA-Public Use
  Company Number: 2010MA003144

PATIENT
  Age: 35 Year
  Sex: Female
  Weight: 38 kg

DRUGS (1)
  1. FEVERALL [Suspect]
     Indication: PAIN IN EXTREMITY
     Dosage: 5300 MG; QD
     Dates: start: 20041101

REACTIONS (5)
  - DRUG ABUSE [None]
  - METABOLIC ACIDOSIS [None]
  - OVERDOSE [None]
  - PANCREATITIS ACUTE [None]
  - STRESS [None]
